FAERS Safety Report 10350387 (Version 2)
Quarter: 2014Q3

REPORT INFORMATION
  Report Type: Spontaneous
  Country: US (occurrence: None)
  Receive Date: 20140729
  Receipt Date: 20140812
  Transmission Date: 20150326
  Serious: No
  Sender: FDA-Public Use
  Company Number: DL2014-0649

PATIENT
  Age: 28 Year
  Sex: Female

DRUGS (2)
  1. MIFEPRISTONE [Suspect]
     Active Substance: MIFEPRISTONE
     Indication: ABORTION INDUCED
     Route: 048
     Dates: start: 20140605
  2. MISOPROSTOL TABLETS, 200 MCG [Suspect]
     Active Substance: MISOPROSTOL
     Route: 002
     Dates: start: 20140606

REACTIONS (4)
  - Anaemia [None]
  - Haemorrhage [None]
  - Dyspnoea [None]
  - Muscle spasms [None]

NARRATIVE: CASE EVENT DATE: 20140606
